FAERS Safety Report 18497983 (Version 1)
Quarter: 2020Q4

REPORT INFORMATION
  Report Type: Spontaneous
  Country: FR (occurrence: FR)
  Receive Date: 20201112
  Receipt Date: 20201112
  Transmission Date: 20210114
  Serious: Yes (Death)
  Sender: FDA-Public Use
  Company Number: FR-MYLANLABS-2020M1093618

PATIENT
  Age: 94 Year
  Sex: Female
  Weight: 58 kg

DRUGS (2)
  1. ALLOPURINOL. [Suspect]
     Active Substance: ALLOPURINOL
     Indication: HYPERURICAEMIA
     Dosage: 100 MILLIGRAM, QD
     Route: 048
     Dates: start: 20200630, end: 20201001
  2. VERCYTE [Suspect]
     Active Substance: PIPOBROMAN
     Indication: THROMBOCYTOSIS
     Dosage: 2 DOSAGE FORM, QD
     Route: 048
     Dates: start: 20200702, end: 20200929

REACTIONS (1)
  - Bone marrow failure [Fatal]

NARRATIVE: CASE EVENT DATE: 20200928
